FAERS Safety Report 25723111 (Version 1)
Quarter: 2025Q3

REPORT INFORMATION
  Report Type: Spontaneous
  Country: QA (occurrence: QA)
  Receive Date: 20250825
  Receipt Date: 20250825
  Transmission Date: 20251021
  Serious: Yes (Life-Threatening, Hospitalization, Other)
  Sender: PFIZER
  Company Number: QA-PFIZER INC-PV202500100298

PATIENT
  Age: 8 Year
  Sex: Female

DRUGS (8)
  1. HYDROCORTISONE SODIUM SUCCINATE [Suspect]
     Active Substance: HYDROCORTISONE SODIUM SUCCINATE
     Indication: Chloroma
  2. METHOTREXATE [Suspect]
     Active Substance: METHOTREXATE
     Indication: Chloroma
  3. CYTARABINE [Suspect]
     Active Substance: CYTARABINE
     Indication: Chloroma
     Route: 037
  4. CYTARABINE [Suspect]
     Active Substance: CYTARABINE
     Dosage: 1300 MG, 2X/DAY (TOTAL OF 8 DOSES)
     Route: 042
  5. CYTARABINE [Suspect]
     Active Substance: CYTARABINE
     Route: 037
  6. CYTARABINE [Suspect]
     Active Substance: CYTARABINE
     Dosage: 1280 MG, 2X/DAY (8 DOSES, INTERMITTENTLY EVERY 12 H)
     Route: 042
  7. MITOXANTRONE [Suspect]
     Active Substance: MITOXANTRONE HYDROCHLORIDE
     Indication: Chloroma
     Route: 042
  8. DEXRAZOXANE [Suspect]
     Active Substance: DEXRAZOXANE
     Indication: Chloroma
     Route: 042

REACTIONS (4)
  - Septic shock [Unknown]
  - Thrombocytopenia [Unknown]
  - Neutropenia [Unknown]
  - Off label use [Unknown]
